FAERS Safety Report 12270029 (Version 3)
Quarter: 2016Q2

REPORT INFORMATION
  Report Type: Spontaneous
  Country: FR (occurrence: FR)
  Receive Date: 20160415
  Receipt Date: 20160504
  Transmission Date: 20160815
  Serious: Yes (Life-Threatening, Hospitalization)
  Sender: FDA-Public Use
  Company Number: FR-JNJFOC-20160407418

PATIENT
  Age: 59 Year
  Sex: Male

DRUGS (7)
  1. AMOXICILLIN. [Concomitant]
     Active Substance: AMOXICILLIN
     Indication: LUNG DISORDER
     Route: 048
     Dates: start: 20160202, end: 20160204
  2. ACTIFED RHUME JOUR + NUIT [Suspect]
     Active Substance: ACETAMINOPHEN\PSEUDOEPHEDRINE HYDROCHLORIDE
     Indication: NASOPHARYNGITIS
     Dosage: 1 TABLET 4 PER DAY
     Route: 048
     Dates: start: 20160201, end: 20160204
  3. IMODIUM [Concomitant]
     Active Substance: LOPERAMIDE HYDROCHLORIDE
     Indication: DIARRHOEA
     Route: 048
     Dates: start: 20160204, end: 20160204
  4. ACETYLCYSTEINE. [Concomitant]
     Active Substance: ACETYLCYSTEINE
     Indication: LUNG DISORDER
     Route: 048
     Dates: start: 20160202, end: 20160204
  5. ACTIFED RHUME JOUR + NUIT [Suspect]
     Active Substance: ACETAMINOPHEN\PSEUDOEPHEDRINE HYDROCHLORIDE
     Indication: NASOPHARYNGITIS
     Dosage: 1 TABLET 4 PER DAY
     Route: 048
     Dates: start: 20160201, end: 20160204
  6. ULTRA-LEVURE [Concomitant]
     Active Substance: SACCHAROMYCES CEREVISIAE
     Indication: PRODUCT USED FOR UNKNOWN INDICATION
     Route: 048
     Dates: start: 20160204, end: 20160204
  7. DOLIPRANE [Concomitant]
     Active Substance: ACETAMINOPHEN
     Indication: LUNG DISORDER
     Route: 048
     Dates: start: 20160202, end: 20160204

REACTIONS (1)
  - Suicide attempt [Recovering/Resolving]

NARRATIVE: CASE EVENT DATE: 20160205
